FAERS Safety Report 14734353 (Version 1)
Quarter: 2018Q2

REPORT INFORMATION
  Report Type: Spontaneous
  Country: IT (occurrence: IT)
  Receive Date: 20180409
  Receipt Date: 20180409
  Transmission Date: 20180711
  Serious: Yes (Hospitalization)
  Sender: FDA-Public Use
  Company Number: IT-BAYER-2018-062094

PATIENT
  Age: 66 Year
  Sex: Female
  Weight: 45 kg

DRUGS (13)
  1. LYRICA [Concomitant]
     Active Substance: PREGABALIN
  2. CALCITRIOL. [Concomitant]
     Active Substance: CALCITRIOL
  3. TACROLIMUS. [Interacting]
     Active Substance: TACROLIMUS
  4. STIVARGA [Suspect]
     Active Substance: REGORAFENIB
     Indication: NEOPLASM RECURRENCE
     Dosage: 160 MG
     Route: 048
     Dates: start: 20180205, end: 20180223
  5. CERTICAN [Concomitant]
     Active Substance: EVEROLIMUS
     Indication: LIVER TRANSPLANT
     Dates: start: 20170113
  6. TARGIN [Concomitant]
     Active Substance: NALOXONE HYDROCHLORIDE\OXYCODONE HYDROCHLORIDE
     Dosage: 5 MG/2,5MG EXTENDED RELEASE TABLET
  7. EVEROLIMUS. [Interacting]
     Active Substance: EVEROLIMUS
  8. CLONAZEPAM. [Concomitant]
     Active Substance: CLONAZEPAM
  9. ADOP-TAR [Concomitant]
     Indication: LIVER TRANSPLANT
     Route: 048
     Dates: start: 20160315
  10. OMEPRAZOLE. [Concomitant]
     Active Substance: OMEPRAZOLE
  11. EUTIROX [Concomitant]
     Active Substance: LEVOTHYROXINE SODIUM
  12. FUROSEMIDE. [Concomitant]
     Active Substance: FUROSEMIDE
  13. FENTANYL. [Concomitant]
     Active Substance: FENTANYL

REACTIONS (4)
  - Pneumonia [Unknown]
  - Respiratory failure [Unknown]
  - Hyperpyrexia [Unknown]
  - Urinary tract infection [Unknown]

NARRATIVE: CASE EVENT DATE: 20180220
